FAERS Safety Report 14748495 (Version 1)
Quarter: 2018Q2

REPORT INFORMATION
  Report Type: Spontaneous
  Country: US (occurrence: US)
  Receive Date: 20180411
  Receipt Date: 20180411
  Transmission Date: 20180711
  Serious: No
  Sender: FDA-Public Use
  Company Number: US-AMGEN-USASP2017157968

PATIENT
  Age: 79 Year
  Sex: Female

DRUGS (8)
  1. LISINOPRIL. [Concomitant]
     Active Substance: LISINOPRIL
  2. VITAMIN D3 [Concomitant]
     Active Substance: CHOLECALCIFEROL
  3. KEPPRA [Concomitant]
     Active Substance: LEVETIRACETAM
  4. PROLIA [Suspect]
     Active Substance: DENOSUMAB
     Indication: OSTEOPOROSIS POSTMENOPAUSAL
     Dosage: UNK
     Route: 065
     Dates: start: 20170917
  5. GLUCOSAMINE CHONDROITIN [Concomitant]
     Active Substance: CHONDROITIN SULFATE (BOVINE)\GLUCOSAMINE HYDROCHLORIDE
  6. VITAMIN C [Concomitant]
     Active Substance: ASCORBIC ACID
  7. OMEPRAZOLE. [Concomitant]
     Active Substance: OMEPRAZOLE
  8. BABY ASPIRIN [Concomitant]
     Active Substance: ASPIRIN

REACTIONS (16)
  - Dysuria [Unknown]
  - Pruritus [Unknown]
  - Paraesthesia [Unknown]
  - Weight increased [Unknown]
  - Hypoaesthesia [Unknown]
  - Malaise [Not Recovered/Not Resolved]
  - Genital rash [Unknown]
  - Night sweats [Unknown]
  - Wheezing [Unknown]
  - Myalgia [Recovering/Resolving]
  - Dyspnoea [Unknown]
  - Stomatitis [Unknown]
  - Liver function test increased [Recovered/Resolved]
  - Chest discomfort [Unknown]
  - Dizziness [Unknown]
  - Bone disorder [Unknown]

NARRATIVE: CASE EVENT DATE: 2017
